FAERS Safety Report 4311933-9 (Version None)
Quarter: 2004Q1

REPORT INFORMATION
  Report Type: 
  Country: None (occurrence: None)
  Receive Date: 20040303
  Receipt Date: 20040224
  Transmission Date: 20041129
  Serious: Yes (Death, Hospitalization)
  Sender: FDA-Public Use
  Company Number: 2004-02-1741

PATIENT
  Age: 44 Year
  Sex: Female
  Weight: 96 kg

DRUGS (5)
  1. PEG-INTRON [Suspect]
     Indication: HEPATITIS C
     Dosage: 120 MCG QWK SUBCUTANEOUS
     Route: 058
     Dates: start: 20030525, end: 20031228
  2. REBETOL [Suspect]
     Indication: HEPATITIS C
     Dosage: 10000 MG QD ORAL
     Route: 048
     Dates: start: 20030525, end: 20031228
  3. INSULIN [Concomitant]
  4. UNSPECIFIED THERAPEUTIC AGENT [Concomitant]
  5. ANTIHYPERTENSIVE AGENT (NOS) [Concomitant]

REACTIONS (9)
  - CARDIAC ARREST [None]
  - GINGIVAL BLEEDING [None]
  - HAEMORRHAGE INTRACRANIAL [None]
  - HAEMORRHAGE URINARY TRACT [None]
  - LYMPHADENOPATHY [None]
  - PANCYTOPENIA [None]
  - PETECHIAE [None]
  - PURPURA [None]
  - THROMBOCYTOPENIA [None]
